FAERS Safety Report 15508510 (Version 16)
Quarter: 2020Q4

REPORT INFORMATION
  Report Type: Report from Study
  Country: CA (occurrence: CA)
  Receive Date: 20181016
  Receipt Date: 20201217
  Transmission Date: 20210113
  Serious: Yes (Other)
  Sender: FDA-Public Use
  Company Number: PHHY2017CA091541

PATIENT
  Age: 40 Year
  Sex: Female

DRUGS (7)
  1. METFORMIN HYDROCHLORIDE. [Suspect]
     Active Substance: METFORMIN HYDROCHLORIDE
     Indication: PRODUCT USED FOR UNKNOWN INDICATION
     Dosage: 1000 MG, UNK
     Route: 065
     Dates: start: 20180511
  2. SYNTHROID [Concomitant]
     Active Substance: LEVOTHYROXINE SODIUM
     Indication: PRODUCT USED FOR UNKNOWN INDICATION
     Dosage: UNK
     Route: 065
     Dates: start: 20190214
  3. SANDOSTATIN LAR DEPOT [Suspect]
     Active Substance: OCTREOTIDE ACETATE
  4. THYROXIN [Concomitant]
     Active Substance: LEVOTHYROXINE
     Indication: PRODUCT USED FOR UNKNOWN INDICATION
     Dosage: UNK
     Route: 065
  5. INSULIN [Concomitant]
     Active Substance: INSULIN NOS
     Indication: DIABETES MELLITUS
     Dosage: UNK
     Route: 065
  6. SANDOSTATIN LAR DEPOT [Suspect]
     Active Substance: OCTREOTIDE ACETATE
     Indication: ACROMEGALY
     Dosage: 40 MG, QMO
     Route: 030
     Dates: start: 20170616
  7. SANDOSTATIN LAR DEPOT [Suspect]
     Active Substance: OCTREOTIDE ACETATE
     Dosage: 60 MG, QMO (EVERY 4 WEEKS)
     Route: 030
     Dates: start: 20170616

REACTIONS (29)
  - Pain [Recovering/Resolving]
  - Blood creatine decreased [Unknown]
  - Asthenia [Not Recovered/Not Resolved]
  - Infection [Unknown]
  - Malaise [Unknown]
  - Palpitations [Unknown]
  - Alopecia [Unknown]
  - Cyst [Unknown]
  - Diarrhoea [Unknown]
  - Anxiety [Unknown]
  - Fall [Unknown]
  - Nausea [Unknown]
  - Vomiting [Unknown]
  - Abdominal discomfort [Unknown]
  - Blood pressure systolic increased [Unknown]
  - Back injury [Unknown]
  - Headache [Unknown]
  - Blood glucose abnormal [Recovering/Resolving]
  - Back pain [Unknown]
  - Cholelithiasis [Unknown]
  - Needle issue [Unknown]
  - Weight increased [Not Recovered/Not Resolved]
  - Hormone level abnormal [Unknown]
  - Blood glucose increased [Recovering/Resolving]
  - Abdominal distension [Unknown]
  - Arthritis [Unknown]
  - Pain in extremity [Unknown]
  - Fatigue [Unknown]
  - Musculoskeletal discomfort [Unknown]

NARRATIVE: CASE EVENT DATE: 20170616
